FAERS Safety Report 14223070 (Version 1)
Quarter: 2017Q4

REPORT INFORMATION
  Report Type: Spontaneous
  Country: US (occurrence: US)
  Receive Date: 20171124
  Receipt Date: 20171124
  Transmission Date: 20180321
  Serious: No
  Sender: FDA-Public Use
  Company Number: US-JNJFOC-20171031421

PATIENT
  Age: 22 Year
  Sex: Male
  Weight: 72.58 kg

DRUGS (4)
  1. CLARITIN [Concomitant]
     Active Substance: LORATADINE
     Indication: SEASONAL ALLERGY
     Dosage: AS NEEDED
     Route: 065
     Dates: start: 2014
  2. PEPCID [Concomitant]
     Active Substance: FAMOTIDINE
     Indication: GASTROOESOPHAGEAL REFLUX DISEASE
     Route: 065
     Dates: start: 201707
  3. REMICADE [Suspect]
     Active Substance: INFLIXIMAB
     Indication: CROHN^S DISEASE
     Route: 042
     Dates: start: 2005, end: 201612
  4. REMICADE [Suspect]
     Active Substance: INFLIXIMAB
     Indication: CROHN^S DISEASE
     Route: 042
     Dates: start: 2017, end: 20170731

REACTIONS (3)
  - Product use issue [Unknown]
  - Off label use [Unknown]
  - Viral titre decreased [Not Recovered/Not Resolved]

NARRATIVE: CASE EVENT DATE: 2005
